FAERS Safety Report 22220523 (Version 3)
Quarter: 2023Q2

REPORT INFORMATION
  Report Type: Spontaneous
  Country: JP (occurrence: JP)
  Receive Date: 20230417
  Receipt Date: 20230620
  Transmission Date: 20230722
  Serious: Yes (Death, Hospitalization, Other)
  Sender: FDA-Public Use
  Company Number: JP-BRISTOL-MYERS SQUIBB COMPANY-2023-051332

PATIENT
  Age: 66 Year
  Sex: Male
  Weight: 50 kg

DRUGS (14)
  1. YERVOY [Suspect]
     Active Substance: IPILIMUMAB
     Indication: Non-small cell lung cancer
     Dosage: FIRST COURSE
     Route: 041
     Dates: start: 20230104, end: 20230104
  2. OPDIVO [Suspect]
     Active Substance: NIVOLUMAB
     Indication: Non-small cell lung cancer
     Dosage: FIRST COURSE
     Route: 041
     Dates: start: 20230104, end: 20230104
  3. OPDIVO [Suspect]
     Active Substance: NIVOLUMAB
     Dosage: SECOND COURSE
     Route: 041
     Dates: start: 20230125, end: 20230125
  4. CISPLATIN [Concomitant]
     Active Substance: CISPLATIN
     Indication: Non-small cell lung cancer
     Dosage: FIRST COURSE
     Route: 041
     Dates: start: 20230104, end: 20230104
  5. CISPLATIN [Concomitant]
     Active Substance: CISPLATIN
     Dosage: SECOND COURSE
     Route: 041
     Dates: start: 20230125, end: 20230125
  6. PEMETREXED [Concomitant]
     Active Substance: PEMETREXED
     Indication: Non-small cell lung cancer
     Dosage: FIRST COURSE
     Route: 041
     Dates: start: 20230104, end: 20230104
  7. PEMETREXED [Concomitant]
     Active Substance: PEMETREXED
     Dosage: SECOND COURSE
     Route: 041
     Dates: start: 20230125, end: 20230125
  8. OXYCODONE [Concomitant]
     Active Substance: OXYCODONE
     Indication: Non-small cell lung cancer
     Route: 048
  9. MAGNESIUM OXIDE [Concomitant]
     Active Substance: MAGNESIUM OXIDE
     Indication: Non-small cell lung cancer
     Route: 048
  10. SYMPROIC [Concomitant]
     Active Substance: NALDEMEDINE
     Indication: Non-small cell lung cancer
     Route: 048
  11. LANSOPRAZOLE [Concomitant]
     Active Substance: LANSOPRAZOLE
     Indication: Non-small cell lung cancer
     Route: 048
  12. CELECOXIB [Concomitant]
     Active Substance: CELECOXIB
     Indication: Non-small cell lung cancer
     Route: 048
  13. GLYDIL [CLOBETASOL PROPIONATE] [Concomitant]
     Indication: Non-small cell lung cancer
     Route: 003
  14. VITAMINS NOS [Concomitant]
     Active Substance: VITAMINS
     Indication: Non-small cell lung cancer
     Route: 048

REACTIONS (6)
  - Immune-mediated lung disease [Recovering/Resolving]
  - Fulminant type 1 diabetes mellitus [Fatal]
  - Chest pain [Recovering/Resolving]
  - Acute myocardial infarction [Unknown]
  - Blood pressure decreased [Unknown]
  - Immune-mediated hepatitis [Unknown]

NARRATIVE: CASE EVENT DATE: 20230217
